FAERS Safety Report 16987548 (Version 1)
Quarter: 2019Q4

REPORT INFORMATION
  Report Type: Report from Study
  Country: CO (occurrence: CO)
  Receive Date: 20191102
  Receipt Date: 20191102
  Transmission Date: 20200122
  Serious: Yes (Hospitalization)
  Sender: FDA-Public Use
  Company Number: NVSC2019CO020970

PATIENT
  Sex: Male

DRUGS (1)
  1. SANDOSTATIN LAR DEPOT [Suspect]
     Active Substance: OCTREOTIDE ACETATE
     Indication: PANCREATIC NEUROENDOCRINE TUMOUR
     Dosage: 20 MG, QMO
     Route: 030

REACTIONS (5)
  - Abdominal pain upper [Unknown]
  - Loss of consciousness [Unknown]
  - Palpitations [Unknown]
  - Bile duct stone [Unknown]
  - Heart rate decreased [Unknown]
